FAERS Safety Report 22333723 (Version 1)
Quarter: 2023Q2

REPORT INFORMATION
  Report Type: Spontaneous
  Country: TH (occurrence: TH)
  Receive Date: 20230517
  Receipt Date: 20230517
  Transmission Date: 20230722
  Serious: Yes (Death)
  Sender: FDA-Public Use
  Company Number: TH-PFIZER INC-202300190658

PATIENT
  Age: 29 Year
  Sex: Male

DRUGS (1)
  1. XALKORI [Suspect]
     Active Substance: CRIZOTINIB
     Indication: Non-small cell lung cancer
     Dosage: 250 MG TWICE DAILY
     Route: 048
     Dates: start: 20230209

REACTIONS (1)
  - Disease complication [Fatal]
